FAERS Safety Report 8839249 (Version 3)
Quarter: 2012Q4

REPORT INFORMATION
  Report Type: 
  Country: IS (occurrence: IS)
  Receive Date: 20121015
  Receipt Date: 20121220
  Transmission Date: 20130627
  Serious: Yes (Death)
  Sender: FDA-Public Use
  Company Number: IS-JNJFOC-20121003650

PATIENT
  Age: 53 Year
  Sex: Male
  Weight: 63.5 kg

DRUGS (1)
  1. REMICADE [Suspect]
     Indication: CROHN^S DISEASE
     Dosage: 5-7 mg/kg dose and 21 infusions received in total
     Route: 042
     Dates: start: 20091028, end: 20120430

REACTIONS (1)
  - Sarcoma [Fatal]
